FAERS Safety Report 9637659 (Version 9)
Quarter: 2015Q3

REPORT INFORMATION
  Report Type: Report from Study
  Country: US (occurrence: US)
  Receive Date: 20131022
  Receipt Date: 20150921
  Transmission Date: 20151125
  Serious: Yes (Hospitalization, Other)
  Sender: FDA-Public Use
  Company Number: US-ALEXION PHARMACEUTICALS INC.-A201302689

PATIENT

DRUGS (2)
  1. SOLIRIS [Suspect]
     Active Substance: ECULIZUMAB
     Indication: HAEMOLYTIC URAEMIC SYNDROME
     Dosage: UNK
     Route: 042
  2. SOLIRIS [Suspect]
     Active Substance: ECULIZUMAB
     Dosage: 1200 MG, Q2W
     Route: 042
     Dates: start: 20111014

REACTIONS (15)
  - Ankle operation [Unknown]
  - Endocrine disorder [Unknown]
  - Pain in extremity [Not Recovered/Not Resolved]
  - Nasopharyngitis [Recovered/Resolved]
  - Bone disorder [Unknown]
  - Breast mass [Not Recovered/Not Resolved]
  - Hip arthroplasty [Recovered/Resolved]
  - Femur fracture [Unknown]
  - Arthralgia [Unknown]
  - Uterine disorder [Recovered/Resolved]
  - Hip surgery [Unknown]
  - Spinal cord operation [Unknown]
  - Knee operation [Unknown]
  - Haemoglobin decreased [Recovered/Resolved]
  - Arthralgia [Not Recovered/Not Resolved]

NARRATIVE: CASE EVENT DATE: 2012
